FAERS Safety Report 16598549 (Version 2)
Quarter: 2019Q3

REPORT INFORMATION
  Report Type: Spontaneous
  Country: US (occurrence: US)
  Receive Date: 20190719
  Receipt Date: 20190723
  Transmission Date: 20191004
  Serious: Yes (Other)
  Sender: FDA-Public Use
  Company Number: US-PFIZER INC-2019306148

PATIENT
  Age: 74 Year
  Sex: Female

DRUGS (1)
  1. XELJANZ XR [Suspect]
     Active Substance: TOFACITINIB CITRATE
     Dosage: 11 MG, UNK

REACTIONS (7)
  - Painful respiration [Unknown]
  - Chest pain [Unknown]
  - Back pain [Unknown]
  - Joint swelling [Unknown]
  - Tearfulness [Unknown]
  - Chronic obstructive pulmonary disease [Not Recovered/Not Resolved]
  - Nodule [Unknown]
